FAERS Safety Report 13393574 (Version 1)
Quarter: 2017Q1

REPORT INFORMATION
  Report Type: Spontaneous
  Country: US (occurrence: US)
  Receive Date: 20170331
  Receipt Date: 20170331
  Transmission Date: 20170429
  Serious: Yes (Other)
  Sender: FDA-Public Use
  Company Number: US-SHIRE-US201707269

PATIENT
  Age: 72 Year
  Sex: Female

DRUGS (1)
  1. XIIDRA [Suspect]
     Active Substance: LIFITEGRAST
     Indication: PRODUCT USED FOR UNKNOWN INDICATION
     Dosage: UNK, UNKNOWN
     Route: 047
     Dates: start: 201702

REACTIONS (5)
  - Instillation site erythema [Recovered/Resolved]
  - Incorrect product storage [Recovered/Resolved]
  - Corneal epithelium defect [Recovered/Resolved]
  - Instillation site reaction [Recovered/Resolved]
  - Corneal thinning [Recovered/Resolved]

NARRATIVE: CASE EVENT DATE: 201702
